FAERS Safety Report 22165216 (Version 1)
Quarter: 2023Q2

REPORT INFORMATION
  Report Type: Spontaneous
  Country: US (occurrence: US)
  Receive Date: 20230403
  Receipt Date: 20230403
  Transmission Date: 20230721
  Serious: Yes (Other)
  Sender: FDA-Public Use
  Company Number: US-ABBVIE-4710026

PATIENT
  Age: 73 Year
  Sex: Female
  Weight: 58.966 kg

DRUGS (27)
  1. HUMIRA [Suspect]
     Active Substance: ADALIMUMAB
     Indication: Product used for unknown indication
     Route: 058
  2. CRESTOR [Concomitant]
     Active Substance: ROSUVASTATIN CALCIUM
     Indication: Product used for unknown indication
  3. XANAX [Concomitant]
     Active Substance: ALPRAZOLAM
     Indication: Product used for unknown indication
  4. CELEBREX [Concomitant]
     Active Substance: CELECOXIB
     Indication: Product used for unknown indication
  5. ULTRAM [Concomitant]
     Active Substance: TRAMADOL HYDROCHLORIDE
     Indication: Product used for unknown indication
  6. FLONASE [Concomitant]
     Active Substance: FLUTICASONE PROPIONATE
     Indication: Product used for unknown indication
     Dosage: ACTUATION NASAL SPRAY
  7. SYNTHROID [Concomitant]
     Active Substance: LEVOTHYROXINE SODIUM
     Indication: Product used for unknown indication
  8. HERBALS\TURMERIC [Concomitant]
     Active Substance: HERBALS\TURMERIC
     Indication: Product used for unknown indication
  9. ALPHA LIPOIC ACID 400 [Concomitant]
     Indication: Product used for unknown indication
  10. PAXLOVID [Suspect]
     Active Substance: NIRMATRELVIR\RITONAVIR
     Indication: COVID-19
     Dosage: 3 PILLS
     Route: 048
     Dates: start: 20230205
  11. ATROVENT [Concomitant]
     Active Substance: IPRATROPIUM BROMIDE
     Indication: Product used for unknown indication
     Dosage: (0.03 %) NASAL SPRAY
  12. MAGNESIUM [Concomitant]
     Active Substance: MAGNESIUM
     Indication: Product used for unknown indication
     Dosage: PO
  13. PRILOSEC [Concomitant]
     Active Substance: OMEPRAZOLE MAGNESIUM
     Indication: Product used for unknown indication
  14. ESTRACE [Concomitant]
     Active Substance: ESTRADIOL
     Indication: Product used for unknown indication
     Dosage: 0.01 % (0.1 MG/GRAM) VAGINAL CREAM
  15. VITAMIN D3 [Concomitant]
     Active Substance: CHOLECALCIFEROL
     Indication: Product used for unknown indication
     Dosage: 2,000 UNIT
  16. ZOLOFT [Concomitant]
     Active Substance: SERTRALINE HYDROCHLORIDE
     Indication: Product used for unknown indication
  17. CITRUCEL [Concomitant]
     Active Substance: METHYLCELLULOSE (4000 MPA.S)
     Indication: Product used for unknown indication
  18. TEMOVATE [Concomitant]
     Active Substance: CLOBETASOL PROPIONATE
     Indication: Product used for unknown indication
  19. MODERNA COVID-19 VACCINE [Concomitant]
     Active Substance: ELASOMERAN
     Indication: COVID-19 immunisation
     Dosage: ONE IN ONCE FREQUENCY
     Route: 030
     Dates: start: 20211008, end: 20211008
  20. MODERNA COVID-19 VACCINE [Concomitant]
     Active Substance: ELASOMERAN
     Indication: COVID-19 immunisation
     Dosage: ONE IN ONCE FREQUENCY
     Route: 030
     Dates: start: 20210220, end: 20210220
  21. MODERNA COVID-19 VACCINE [Concomitant]
     Active Substance: ELASOMERAN
     Indication: COVID-19 immunisation
     Dosage: ONE IN ONCE FREQUENCY
     Route: 030
     Dates: start: 20211008, end: 20211008
  22. MODERNA COVID-19 VACCINE [Concomitant]
     Active Substance: ELASOMERAN
     Indication: COVID-19 immunisation
     Dosage: ONE IN ONCE FREQUENCY
     Route: 030
     Dates: start: 20210220, end: 20210220
  23. MODERNA COVID-19 VACCINE [Concomitant]
     Active Substance: ELASOMERAN
     Indication: COVID-19 immunisation
     Dosage: ONE IN ONCE FREQUENCY
     Route: 030
     Dates: start: 20210123, end: 20210123
  24. PFIZER-BIONTECH COVID-19 VACCINE [Concomitant]
     Active Substance: TOZINAMERAN
     Indication: COVID-19 immunisation
     Dosage: BIVALENT BOOSTER?ONE IN ONCE FREQUENCY
     Route: 030
     Dates: start: 20221128, end: 20221128
  25. PFIZER-BIONTECH COVID-19 VACCINE [Concomitant]
     Active Substance: TOZINAMERAN
     Indication: COVID-19 immunisation
     Dosage: GRAY TOP?ONE IN ONCE FREQUENCY
     Route: 030
     Dates: start: 20220506, end: 20220506
  26. TRIAMCINOLONE ACETONIDE [Concomitant]
     Active Substance: TRIAMCINOLONE ACETONIDE
     Indication: Product used for unknown indication
     Dosage: INJECTION
     Dates: start: 20220520
  27. INFLUENZA VIRUS VACCINE [Concomitant]
     Active Substance: INFLUENZA VIRUS VACCINE
     Indication: Product used for unknown indication
     Dosage: INACTIVE 10/15/2015, INFLUENZA, UNSPECIFIED FORMULATION 10/13/2016, 10/14/2014, 11/1/2012, INFLUE...

REACTIONS (45)
  - Hiatus hernia [Unknown]
  - Gastrooesophageal reflux disease [Unknown]
  - Gastrooesophageal reflux disease [Unknown]
  - Menopausal symptoms [Unknown]
  - Osteopenia [Unknown]
  - Goitre [Unknown]
  - Hyperlipidaemia [Unknown]
  - Essential hypertension [Unknown]
  - Urinary tract infection [Unknown]
  - Dyspnoea [Unknown]
  - Aortic valve incompetence [Unknown]
  - Polyneuropathy [Unknown]
  - Osteoarthritis [Unknown]
  - Hypothyroidism [Unknown]
  - Iron deficiency anaemia [Unknown]
  - Illness [Unknown]
  - Atrophic vulvovaginitis [Unknown]
  - Psoriatic arthropathy [Unknown]
  - Osteoarthritis [Unknown]
  - Erythema nodosum [Unknown]
  - Acquired oesophageal web [Unknown]
  - Deafness neurosensory [Unknown]
  - Neck pain [Unknown]
  - Diverticulum [Unknown]
  - Cystitis [Unknown]
  - Anxiety [Unknown]
  - Reflux laryngitis [Unknown]
  - Psoriasis [Unknown]
  - Gastrointestinal haemorrhage [Unknown]
  - Metabolic syndrome [Unknown]
  - Vitamin D deficiency [Unknown]
  - Ingrowing nail [Unknown]
  - Constipation [Unknown]
  - Pain in extremity [Unknown]
  - Tinnitus [Unknown]
  - Dermatophytosis of nail [Unknown]
  - Costochondritis [Unknown]
  - Arthralgia [Unknown]
  - Hypothyroidism [Unknown]
  - Lipoma [Unknown]
  - Migraine [Unknown]
  - Vertigo positional [Unknown]
  - Acute sinusitis [Unknown]
  - Knee arthroplasty [Unknown]
  - Product label issue [Unknown]

NARRATIVE: CASE EVENT DATE: 20230313
